FAERS Safety Report 8956199 (Version 2)
Quarter: 2012Q4

REPORT INFORMATION
  Report Type: 
  Country: AU (occurrence: AU)
  Receive Date: 20121210
  Receipt Date: 20121217
  Transmission Date: 20130627
  Serious: Yes (Other)
  Sender: FDA-Public Use
  Company Number: PHHY2012AU112794

PATIENT
  Age: 27 Year
  Sex: Male

DRUGS (2)
  1. RITALIN [Suspect]
     Indication: ATTENTION DEFICIT/HYPERACTIVITY DISORDER
     Dosage: 40 mg, Daily
     Route: 048
  2. RITALIN [Suspect]
     Dosage: 40 mg, Daily
     Route: 048

REACTIONS (1)
  - Intraocular pressure increased [Recovered/Resolved]
